FAERS Safety Report 4988349-5 (Version None)
Quarter: 2006Q2

REPORT INFORMATION
  Report Type: 
  Country: None (occurrence: None)
  Receive Date: 20060502
  Receipt Date: 20060427
  Transmission Date: 20061013
  Serious: Yes (Other)
  Sender: FDA-Public Use
  Company Number: 2006AP01990

PATIENT
  Age: 31330 Day
  Sex: Male

DRUGS (13)
  1. ATACAND [Suspect]
     Route: 048
  2. COVERSYL [Suspect]
     Route: 048
  3. ALDACTONE [Suspect]
     Route: 048
  4. DIGOXIN [Suspect]
     Route: 048
  5. FRUSEMIDE [Concomitant]
  6. SERETIDE [Concomitant]
     Dosage: 500/50
  7. VENTOLIN [Concomitant]
  8. SPIRIVA [Concomitant]
  9. DIAZEPAM [Concomitant]
  10. ACETAMINOPHEN W/ CODEINE [Concomitant]
  11. SALBUTAMOL [Concomitant]
  12. ATROVENT [Concomitant]
  13. ALPHA KERI [Concomitant]

REACTIONS (3)
  - HYPERKALAEMIA [None]
  - RENAL IMPAIRMENT [None]
  - THERAPEUTIC AGENT TOXICITY [None]
